FAERS Safety Report 7838050-5 (Version None)
Quarter: 2011Q4

REPORT INFORMATION
  Report Type: 
  Country: None (occurrence: None)
  Receive Date: 20111024
  Receipt Date: 20100215
  Transmission Date: 20120403
  Serious: No
  Sender: FDA-Public Use
  Company Number: US-BAYER-201014144NA

PATIENT
  Age: 41 Year
  Sex: Male
  Weight: 84.091 kg

DRUGS (2)
  1. SIMVASTATIN [Concomitant]
  2. LEVITRA [Suspect]
     Indication: ERECTILE DYSFUNCTION
     Dosage: UNK
     Route: 048

REACTIONS (1)
  - GENITAL DISCOMFORT [None]
